FAERS Safety Report 5847191-3 (Version None)
Quarter: 2008Q3

REPORT INFORMATION
  Report Type: 
  Country: None (occurrence: None)
  Receive Date: 20080815
  Receipt Date: 20080812
  Transmission Date: 20090109
  Serious: Yes (Life-Threatening, Hospitalization)
  Sender: FDA-Public Use
  Company Number: US-ASTRAZENECA-2008AC02166

PATIENT
  Age: 9 Month
  Sex: Male

DRUGS (7)
  1. PROPOFOL [Suspect]
     Indication: SEDATION
     Route: 040
  2. PROPOFOL [Suspect]
     Indication: EPILEPSY
     Route: 040
  3. PROPOFOL [Suspect]
     Dosage: UP TO 14 MG/KG/HOUR
     Route: 042
  4. PROPOFOL [Suspect]
     Dosage: UP TO 14 MG/KG/HOUR
     Route: 042
  5. PHENOBARBITAL TAB [Concomitant]
     Indication: PARTIAL SEIZURES
  6. LORAZEPAM [Concomitant]
     Indication: PARTIAL SEIZURES
  7. FOSPHENYTOIN [Concomitant]
     Indication: PARTIAL SEIZURES

REACTIONS (3)
  - CONDUCTION DISORDER [None]
  - OVERDOSE [None]
  - VENTRICULAR TACHYCARDIA [None]
